FAERS Safety Report 15629061 (Version 6)
Quarter: 2019Q4

REPORT INFORMATION
  Report Type: Report from Study
  Country: US (occurrence: US)
  Receive Date: 20181116
  Receipt Date: 20191025
  Transmission Date: 20200122
  Serious: Yes (Other)
  Sender: FDA-Public Use
  Company Number: PHEH2018US048559

PATIENT
  Age: 91 Year
  Sex: Female

DRUGS (1)
  1. ENTRESTO [Suspect]
     Active Substance: SACUBITRIL\VALSARTAN
     Indication: PRODUCT USED FOR UNKNOWN INDICATION
     Dosage: 50 MG, (SACUBITRIL 24MG AND VALSARTAN 26MG), BID
     Route: 048

REACTIONS (14)
  - Fall [Unknown]
  - Limb discomfort [Unknown]
  - Dizziness [Unknown]
  - Sneezing [Unknown]
  - Loss of consciousness [Unknown]
  - Malaise [Unknown]
  - Gait disturbance [Unknown]
  - Productive cough [Unknown]
  - Choking [Unknown]
  - Diarrhoea [Unknown]
  - Sleep disorder [Unknown]
  - Ill-defined disorder [Unknown]
  - Cough [Unknown]
  - Memory impairment [Unknown]

NARRATIVE: CASE EVENT DATE: 20181202
